FAERS Safety Report 9040700 (Version 1)
Quarter: 2013Q1

REPORT INFORMATION
  Report Type: Report from Study
  Country: US (occurrence: US)
  Receive Date: 20130129
  Receipt Date: 20130129
  Transmission Date: 20140127
  Serious: No
  Sender: FDA-Public Use
  Company Number: US-ABBOTT-11P-163-0886463-00

PATIENT
  Age: 38 Year
  Sex: Female

DRUGS (7)
  1. HUMIRA 40 MG/0.8 ML PEN [Suspect]
     Indication: CROHN^S DISEASE
     Dates: start: 20111007
  2. CITALOPRAM [Concomitant]
     Indication: DEPRESSION
     Dosage: AT NIGHT
  3. WELLBUTRIN [Concomitant]
     Indication: DEPRESSION
     Dosage: DAILY
  4. TEMAZEPAM [Concomitant]
     Indication: SLEEP DISORDER
  5. ACYCLOVIR [Concomitant]
     Indication: ANTIVIRAL TREATMENT
  6. LEVOCETIRIZINE [Concomitant]
     Indication: SINUS DISORDER
  7. CIPROFLOXACIN [Concomitant]
     Indication: DRUG EFFECT DECREASED
     Dosage: 1 TAB BID ON OPPOSITE WEEK HUMIRA
     Dates: start: 2011

REACTIONS (12)
  - Fatigue [Not Recovered/Not Resolved]
  - Diarrhoea [Not Recovered/Not Resolved]
  - Myalgia [Not Recovered/Not Resolved]
  - Decreased appetite [Not Recovered/Not Resolved]
  - Nasopharyngitis [Not Recovered/Not Resolved]
  - Oropharyngeal pain [Not Recovered/Not Resolved]
  - Sneezing [Not Recovered/Not Resolved]
  - Pain in jaw [Not Recovered/Not Resolved]
  - Nasopharyngitis [Not Recovered/Not Resolved]
  - Cough [Not Recovered/Not Resolved]
  - Rhinorrhoea [Not Recovered/Not Resolved]
  - Oropharyngeal pain [Not Recovered/Not Resolved]
